FAERS Safety Report 4667000-8 (Version None)
Quarter: 2005Q2

REPORT INFORMATION
  Report Type: 
  Country: None (occurrence: None)
  Receive Date: 20050520
  Receipt Date: 20040409
  Transmission Date: 20051028
  Serious: Yes (Other)
  Sender: FDA-Public Use
  Company Number: PHEH2004US04082

PATIENT
  Age: 60 Year
  Sex: Female

DRUGS (7)
  1. ZOMETA [Suspect]
     Dosage: UNK/UNK
  2. AROMASIN [Concomitant]
  3. EXEMESTANE [Concomitant]
  4. FASLODEX [Concomitant]
     Dates: start: 20020822, end: 20030902
  5. CIPROFLOXACIN HCL [Concomitant]
  6. TAMOXIFEN [Concomitant]
  7. AREDIA [Suspect]
     Dosage: UNK/UNK

REACTIONS (2)
  - OSTEONECROSIS [None]
  - TOOTH EXTRACTION [None]
